FAERS Safety Report 4547397-X (Version None)
Quarter: 2005Q1

REPORT INFORMATION
  Report Type: 
  Country: None (occurrence: None)
  Receive Date: 20050107
  Receipt Date: 20041221
  Transmission Date: 20050727
  Serious: Yes (Hospitalization)
  Sender: FDA-Public Use
  Company Number: IT-ROCHE-389946

PATIENT
  Sex: Male

DRUGS (1)
  1. ROCEPHIN [Suspect]
     Indication: BRONCHITIS
     Dosage: FORMULATION IS 1 G VIAL.
     Route: 030
     Dates: start: 20041213, end: 20041213

REACTIONS (2)
  - LARYNGEAL OEDEMA [None]
  - URTICARIA [None]
